FAERS Safety Report 8569717-1 (Version None)
Quarter: 2012Q3

REPORT INFORMATION
  Report Type: 
  Country: None (occurrence: None)
  Receive Date: 20120803
  Receipt Date: 20120117
  Transmission Date: 20120928
  Serious: No
  Sender: FDA-Public Use
  Company Number: US-ABBOTT-12P-163-0894911-00

PATIENT
  Sex: Female
  Weight: 74.91 kg

DRUGS (11)
  1. LEVOTHYROXINE SODIUM [Concomitant]
     Indication: HYPOTHYROIDISM
  2. XOPENEX [Concomitant]
     Indication: PRODUCT USED FOR UNKNOWN INDICATION
  3. RESTASIS [Concomitant]
     Indication: DRY EYE
  4. PULMICORT [Concomitant]
     Indication: ASTHMA
  5. ZANTAC [Concomitant]
     Indication: GASTROOESOPHAGEAL REFLUX DISEASE
  6. CLONAZEPAM [Concomitant]
     Indication: ANXIETY
  7. CYMBALTA [Concomitant]
     Indication: DEPRESSION
  8. SINGULAIR [Concomitant]
     Indication: HYPERSENSITIVITY
  9. ESTRACE [Concomitant]
     Indication: HORMONE REPLACEMENT THERAPY
  10. NIASPAN [Suspect]
     Indication: BLOOD CHOLESTEROL INCREASED
     Dates: start: 20120116
  11. ASPIRIN [Concomitant]
     Indication: CARDIAC DISORDER

REACTIONS (1)
  - HEADACHE [None]
